FAERS Safety Report 17775204 (Version 2)
Quarter: 2020Q4

REPORT INFORMATION
  Report Type: Spontaneous
  Country: US (occurrence: US)
  Receive Date: 20200513
  Receipt Date: 20201107
  Transmission Date: 20210113
  Serious: Yes (Disabling)
  Sender: FDA-Public Use
  Company Number: US-TEVA-2020-US-1234248

PATIENT
  Age: 55 Year
  Sex: Female
  Weight: 86.26 kg

DRUGS (2)
  1. CYCLOPHOSPHAMIDE. [Concomitant]
     Active Substance: CYCLOPHOSPHAMIDE
     Indication: BREAST CANCER FEMALE
     Dosage: 600 MG/M2, EVERY 3 WEEKS FOR 4 CYCLES
     Route: 065
     Dates: start: 20161212, end: 20170714
  2. DOCETAXEL. [Suspect]
     Active Substance: DOCETAXEL
     Indication: BREAST CANCER FEMALE
     Dosage: 75 MG/M2, EVERY 3 WEEKS FOR 4 CYCLES
     Route: 065
     Dates: start: 20161212, end: 20170417

REACTIONS (2)
  - Alopecia [Not Recovered/Not Resolved]
  - Hypotrichosis [Unknown]
